FAERS Safety Report 15518562 (Version 3)
Quarter: 2019Q1

REPORT INFORMATION
  Report Type: Report from Study
  Country: US (occurrence: US)
  Receive Date: 20181017
  Receipt Date: 20190131
  Transmission Date: 20190417
  Serious: Yes (Death, Hospitalization)
  Sender: FDA-Public Use
  Company Number: US-ACTELION-A-US2014-102830

PATIENT
  Age: 59 Year
  Sex: Female
  Weight: 139.23 kg

DRUGS (25)
  1. TRACLEER [Suspect]
     Active Substance: BOSENTAN
     Dosage: 62.5 MG, BID
     Route: 048
     Dates: start: 201006, end: 20181231
  2. TRACLEER [Suspect]
     Active Substance: BOSENTAN
     Dosage: 125 MG, BID
     Route: 048
  3. ALLOPURINOL. [Concomitant]
     Active Substance: ALLOPURINOL
  4. FLONASE [Concomitant]
     Active Substance: FLUTICASONE PROPIONATE
  5. LEVOTHYROXINE. [Concomitant]
     Active Substance: LEVOTHYROXINE
  6. AMIODARONE [Concomitant]
     Active Substance: AMIODARONE
  7. CALCITRIOL. [Concomitant]
     Active Substance: CALCITRIOL
  8. CEFTRIAXONE. [Concomitant]
     Active Substance: CEFTRIAXONE
  9. AMLODIPINE [Concomitant]
     Active Substance: AMLODIPINE BESYLATE
  10. SENNA [Concomitant]
     Active Substance: SENNA LEAF\SENNOSIDES\SENNOSIDES A AND B
  11. THIAMINE. [Concomitant]
     Active Substance: THIAMINE
  12. LASIX [Concomitant]
     Active Substance: FUROSEMIDE
  13. FOLIC ACID. [Concomitant]
     Active Substance: FOLIC ACID
  14. SEROQUEL [Concomitant]
     Active Substance: QUETIAPINE FUMARATE
  15. PANTOPRAZOLE [Concomitant]
     Active Substance: PANTOPRAZOLE
  16. SELENIUM [Concomitant]
     Active Substance: SELENIUM
  17. TIOTROPIUM [Concomitant]
     Active Substance: TIOTROPIUM
  18. OXYGEN. [Concomitant]
     Active Substance: OXYGEN
  19. DOBUTAMINE [Concomitant]
     Active Substance: DOBUTAMINE\DOBUTAMINE HYDROCHLORIDE
  20. CLEXANE [Concomitant]
     Active Substance: ENOXAPARIN SODIUM
  21. TRACLEER [Suspect]
     Active Substance: BOSENTAN
     Indication: PULMONARY ARTERIAL HYPERTENSION
     Dosage: 125 MG, BID
     Route: 048
     Dates: start: 201201
  22. SILDENAFIL. [Concomitant]
     Active Substance: SILDENAFIL
     Indication: PULMONARY ARTERIAL HYPERTENSION
  23. FERROUS SULFATE. [Concomitant]
     Active Substance: FERROUS SULFATE
  24. GUAIFENESIN. [Concomitant]
     Active Substance: GUAIFENESIN
  25. MULTIVITAMIN [Concomitant]
     Active Substance: VITAMINS

REACTIONS (15)
  - Sputum discoloured [Not Recovered/Not Resolved]
  - Syncope [Unknown]
  - Oedema [Not Recovered/Not Resolved]
  - Abdominal distension [Unknown]
  - Asthenia [Unknown]
  - Back pain [Unknown]
  - Fluid retention [Unknown]
  - Swelling face [Unknown]
  - Right ventricular failure [Fatal]
  - Fluid overload [Recovering/Resolving]
  - Dyspnoea [Not Recovered/Not Resolved]
  - Gastrooesophageal reflux disease [Unknown]
  - Productive cough [Not Recovered/Not Resolved]
  - Chest pain [Not Recovered/Not Resolved]
  - Fatigue [Unknown]

NARRATIVE: CASE EVENT DATE: 2016
